FAERS Safety Report 7683371-2 (Version None)
Quarter: 2011Q3

REPORT INFORMATION
  Report Type: 
  Country: None (occurrence: None)
  Receive Date: 20110815
  Receipt Date: 20110804
  Transmission Date: 20111222
  Serious: Yes (Hospitalization, Other)
  Sender: FDA-Public Use
  Company Number: US-BAYER-201039330NA

PATIENT
  Age: 36 Year
  Sex: Female
  Weight: 68.027 kg

DRUGS (6)
  1. ZANTAC [Concomitant]
     Dosage: UNK UNK, TID
     Route: 048
  2. TORADOL [Concomitant]
     Route: 030
  3. YASMIN [Suspect]
     Indication: CONTRACEPTION
     Dosage: UNK
     Route: 048
     Dates: start: 20040101, end: 20060101
  4. YASMIN [Suspect]
     Indication: PREMENSTRUAL SYNDROME
     Dosage: UNK
     Dates: start: 20080801, end: 20080901
  5. VITAMIN B-12 [Concomitant]
     Dosage: 1000 ?G, UNK
     Route: 048
     Dates: start: 20080822
  6. PROTONIX [Concomitant]
     Dosage: 40 MG, UNK
     Route: 048

REACTIONS (1)
  - CEREBROVASCULAR ACCIDENT [None]
